FAERS Safety Report 24035077 (Version 2)
Quarter: 2024Q3

REPORT INFORMATION
  Report Type: Spontaneous
  Country: GB (occurrence: GB)
  Receive Date: 20240701
  Receipt Date: 20240711
  Transmission Date: 20241017
  Serious: Yes (Hospitalization, Other)
  Sender: MYLAN
  Company Number: GB-MYLANLABS-2024M1060973

PATIENT
  Sex: Male

DRUGS (2)
  1. CLOZARIL [Suspect]
     Active Substance: CLOZAPINE
     Indication: Schizophrenia
     Dosage: UNK
     Route: 048
     Dates: start: 20160719, end: 20240620
  2. CLOZARIL [Suspect]
     Active Substance: CLOZAPINE
     Dosage: UNK (RETITRATED DOSE FROM ZERO)
     Route: 048
     Dates: start: 20240704

REACTIONS (2)
  - Malaise [Unknown]
  - Mental impairment [Unknown]
